FAERS Safety Report 9075976 (Version 3)
Quarter: 2013Q1

REPORT INFORMATION
  Report Type: Spontaneous
  Country: US (occurrence: US)
  Receive Date: 20130129
  Receipt Date: 20130228
  Transmission Date: 20140127
  Serious: Yes (Hospitalization)
  Sender: FDA-Public Use
  Company Number: US-GILEAD-2013-0068663

PATIENT
  Age: 40 Year
  Sex: Female

DRUGS (1)
  1. LETAIRIS [Suspect]
     Indication: CONGENITAL ANOMALY
     Dosage: 5 MG, UNK
     Route: 048
     Dates: start: 20120716

REACTIONS (2)
  - Dyspnoea [Unknown]
  - Pneumonia [Unknown]
